FAERS Safety Report 25767875 (Version 1)
Quarter: 2025Q3

REPORT INFORMATION
  Report Type: Spontaneous
  Country: US (occurrence: US)
  Receive Date: 20250905
  Receipt Date: 20250905
  Transmission Date: 20251021
  Serious: Yes (Death, Hospitalization, Other)
  Sender: Kenvue
  Company Number: US-KENVUE-20250810547

PATIENT
  Age: 74 Year
  Sex: Male
  Weight: 156 kg

DRUGS (1)
  1. ACETAMINOPHEN [Suspect]
     Active Substance: ACETAMINOPHEN
     Indication: Product used for unknown indication
     Route: 048
     Dates: start: 20250801

REACTIONS (9)
  - Completed suicide [Fatal]
  - Hepatitis toxic [Fatal]
  - Coagulopathy [Fatal]
  - Abdominal pain [Fatal]
  - Acute respiratory failure [Fatal]
  - Shock [Fatal]
  - Acute kidney injury [Fatal]
  - Metabolic acidosis [Fatal]
  - Intentional overdose [Fatal]

NARRATIVE: CASE EVENT DATE: 20250801
